FAERS Safety Report 5743816-1 (Version None)
Quarter: 2008Q2

REPORT INFORMATION
  Report Type: 
  Country: None (occurrence: None)
  Receive Date: 20080516
  Receipt Date: 20080506
  Transmission Date: 20081010
  Serious: Yes (Death)
  Sender: FDA-Public Use
  Company Number: ADE2008-0187

PATIENT
  Age: 66 Year
  Sex: Male

DRUGS (8)
  1. CITALOPRAM HYDROBROMIDE [Suspect]
     Indication: DEPRESSION
     Dosage: 20 MG
     Dates: start: 20070402, end: 20070601
  2. MIRTAZAPINE [Suspect]
     Dates: start: 20070601, end: 20070601
  3. ACETAMINOPHEN [Suspect]
     Dates: start: 20070601, end: 20070601
  4. ETORICOXIB [Suspect]
     Indication: MUSCULOSKELETAL PAIN
     Dosage: 90 MG
     Dates: start: 20070322, end: 20070601
  5. OXYCODONE HCL [Suspect]
     Indication: MUSCULOSKELETAL PAIN
     Dosage: 80 MG
     Dates: start: 20070601, end: 20070601
  6. DICLOFENAC [Concomitant]
  7. DIHYDROCODEINE [Concomitant]
  8. OXAZEPAM [Concomitant]

REACTIONS (2)
  - DRUG INTERACTION [None]
  - MULTIPLE DRUG OVERDOSE [None]
